FAERS Safety Report 18039396 (Version 3)
Quarter: 2021Q2

REPORT INFORMATION
  Report Type: Spontaneous
  Country: US (occurrence: US)
  Receive Date: 20200717
  Receipt Date: 20210629
  Transmission Date: 20210717
  Serious: Yes (Death, Other)
  Sender: FDA-Public Use
  Company Number: US-TEVA-2020-US-1803458

PATIENT
  Age: 53 Year
  Sex: Male

DRUGS (9)
  1. VALSARTAN SOLCO [Suspect]
     Active Substance: VALSARTAN
     Indication: HYPERTENSION
     Route: 065
     Dates: start: 20160514, end: 20160613
  2. VALSARTAN MYLAN [Suspect]
     Active Substance: VALSARTAN
     Indication: HYPERTENSION
     Route: 065
     Dates: start: 20160208, end: 20160521
  3. ALLOPURINOL. [Concomitant]
     Active Substance: ALLOPURINOL
     Indication: GOUT
     Dosage: 100 MG DAILY
     Dates: start: 20040120, end: 20180515
  4. BENICAR [Concomitant]
     Active Substance: OLMESARTAN MEDOXOMIL
     Indication: HYPERTENSION
     Dosage: 20 MG DAILY
     Dates: start: 20080110, end: 20160208
  5. VALSARTAN SOLCO [Suspect]
     Active Substance: VALSARTAN
     Route: 065
     Dates: start: 20161121, end: 20180813
  6. VALSARTAN SOLCO [Suspect]
     Active Substance: VALSARTAN
     Route: 065
     Dates: start: 20161024, end: 20161123
  7. SIMVASTATIN. [Concomitant]
     Active Substance: SIMVASTATIN
     Indication: BLOOD CHOLESTEROL
     Dosage: 40 MG DAILY
     Dates: start: 20080228, end: 20180312
  8. LEVOTHYROXINE. [Concomitant]
     Active Substance: LEVOTHYROXINE
     Indication: HYPOTHYROIDISM
     Dates: start: 20141002, end: 20150306
  9. VALSARTAN MYLAN [Suspect]
     Active Substance: VALSARTAN
     Route: 065
     Dates: start: 20160616, end: 20160717

REACTIONS (4)
  - Lung neoplasm malignant [Fatal]
  - Brain cancer metastatic [Fatal]
  - Gastric cancer [Fatal]
  - Hepatic cancer [Fatal]
